FAERS Safety Report 8335415-2 (Version None)
Quarter: 2012Q2

REPORT INFORMATION
  Report Type: 
  Country: None (occurrence: None)
  Receive Date: 20120503
  Receipt Date: 20120427
  Transmission Date: 20120825
  Serious: Yes (Hospitalization, Other)
  Sender: FDA-Public Use
  Company Number: US-RB-039819-12

PATIENT
  Age: 20 Year
  Sex: Male

DRUGS (1)
  1. SUBOXONE [Suspect]
     Indication: DRUG DEPENDENCE
     Dosage: DOSING DETAILS NOT PROVIDED
     Route: 042

REACTIONS (5)
  - MALAISE [None]
  - SUBSTANCE ABUSE [None]
  - OVERDOSE [None]
  - INTENTIONAL DRUG MISUSE [None]
  - UNRESPONSIVE TO STIMULI [None]
